FAERS Safety Report 11068754 (Version 1)
Quarter: 2015Q2

REPORT INFORMATION
  Report Type: Spontaneous
  Country: FR (occurrence: FR)
  Receive Date: 20150427
  Receipt Date: 20150427
  Transmission Date: 20150821
  Serious: Yes (Hospitalization)
  Sender: FDA-Public Use
  Company Number: FR-PFIZER INC-2015139671

PATIENT
  Age: 84 Year
  Sex: Female

DRUGS (9)
  1. FORLAX [Concomitant]
     Active Substance: POLYETHYLENE GLYCOL 4000
  2. CIFLOX [Suspect]
     Active Substance: CIPROFLOXACIN
     Dosage: UNK
     Dates: start: 20150218, end: 20150227
  3. KALEORID [Concomitant]
     Active Substance: POTASSIUM CHLORIDE
  4. TERBUTALINE [Concomitant]
     Active Substance: TERBUTALINE
  5. INEXIUM [Concomitant]
     Active Substance: ESOMEPRAZOLE
  6. TAZOCILLINE [Suspect]
     Active Substance: PIPERACILLIN SODIUM\TAZOBACTAM SODIUM
     Dosage: UNK
     Dates: start: 20150218, end: 20150227
  7. AMLOR [Concomitant]
     Active Substance: AMLODIPINE BESYLATE
  8. PARACETAMOL [Concomitant]
     Active Substance: ACETAMINOPHEN
  9. OXYNORM [Concomitant]
     Active Substance: OXYCODONE HYDROCHLORIDE

REACTIONS (1)
  - Myoclonus [Unknown]

NARRATIVE: CASE EVENT DATE: 20150227
